FAERS Safety Report 25007823 (Version 2)
Quarter: 2025Q1

REPORT INFORMATION
  Report Type: Spontaneous
  Country: FR (occurrence: FR)
  Receive Date: 20250225
  Receipt Date: 20250311
  Transmission Date: 20250409
  Serious: Yes (Life-Threatening, Other)
  Sender: AUROBINDO
  Company Number: FR-AFSSAPS-AN2025000167

PATIENT
  Age: 71 Year
  Sex: Male
  Weight: 88 kg

DRUGS (29)
  1. ENOXAPARIN [Suspect]
     Active Substance: ENOXAPARIN
     Indication: Thrombosis prophylaxis
     Dosage: 0.4 MILLILITER, ONCE A DAY
     Route: 058
     Dates: start: 20241230, end: 20250109
  2. LINEZOLID [Suspect]
     Active Substance: LINEZOLID
     Indication: Lung disorder
     Dosage: 6 GRAM, ONCE A DAY
     Route: 042
     Dates: start: 20250103, end: 20250104
  3. MEROPENEM [Suspect]
     Active Substance: MEROPENEM
     Indication: Lung disorder
     Route: 042
     Dates: start: 20250103, end: 20250111
  4. MEROPENEM [Suspect]
     Active Substance: MEROPENEM
     Indication: Pneumonia pneumococcal
  5. NEFOPAM [Suspect]
     Active Substance: NEFOPAM
     Indication: Pain
     Dosage: 100 MILLIGRAM, ONCE A DAY
     Route: 042
     Dates: start: 20241231, end: 20250101
  6. OXYCODONE [Suspect]
     Active Substance: OXYCODONE
     Indication: Pain
     Dosage: 5 MILLIGRAM, FOUR TIMES/DAY
     Route: 042
     Dates: start: 20250102, end: 20250103
  7. OCTREOTIDE [Suspect]
     Active Substance: OCTREOTIDE
     Indication: Tumour of ampulla of Vater
     Dosage: 100 MICROGRAM, 3 TIMES A DAY
     Route: 058
     Dates: start: 20241230, end: 20250109
  8. PANTOPRAZOLE [Suspect]
     Active Substance: PANTOPRAZOLE
     Indication: Prophylaxis against gastrointestinal ulcer
     Dosage: 40 GRAM, ONCE A DAY (20 0-0-1)
     Route: 042
     Dates: end: 20250113
  9. ACETAMINOPHEN [Suspect]
     Active Substance: ACETAMINOPHEN
     Indication: Pain
     Route: 042
     Dates: start: 20241230, end: 20250105
  10. HEPARIN SODIUM [Suspect]
     Active Substance: HEPARIN SODIUM
     Indication: Thrombosis prophylaxis
     Route: 042
     Dates: start: 20250102, end: 20250115
  11. INSULIN ASPART [Suspect]
     Active Substance: INSULIN ASPART
     Indication: Type 2 diabetes mellitus
     Route: 042
     Dates: start: 20241230
  12. PIPERACILLIN SODIUM\TAZOBACTAM SODIUM [Suspect]
     Active Substance: PIPERACILLIN SODIUM\TAZOBACTAM SODIUM
     Indication: Lung disorder
     Dosage: 12 GRAM, ONCE A DAY
     Route: 042
     Dates: start: 20250101, end: 20250102
  13. ERYTHROMYCIN [Suspect]
     Active Substance: ERYTHROMYCIN
     Indication: Impaired gastric emptying
     Dosage: 200 MILLIGRAM, FOUR TIMES/DAY
     Route: 042
     Dates: start: 20241230, end: 20250103
  14. PROPOFOL [Suspect]
     Active Substance: PROPOFOL
     Indication: Sedation
     Route: 042
     Dates: start: 20250103, end: 20250113
  15. MYCAMINE [Suspect]
     Active Substance: MICAFUNGIN SODIUM
     Indication: Lung disorder
     Dosage: 100 MILLIGRAM, ONCE A DAY
     Route: 042
     Dates: start: 20250103, end: 20250104
  16. MYCAMINE [Suspect]
     Active Substance: MICAFUNGIN SODIUM
     Indication: Pneumonia pneumococcal
     Route: 065
     Dates: start: 20250113
  17. DIAZEPAM [Suspect]
     Active Substance: DIAZEPAM
     Indication: Anxiety
     Dosage: 40 MILLIGRAM, ONCE A DAY
     Route: 042
     Dates: start: 20250103, end: 20250104
  18. MIDAZOLAM [Suspect]
     Active Substance: MIDAZOLAM
     Indication: Sedation
     Route: 065
     Dates: start: 20250104, end: 20250109
  19. MIDAZOLAM [Suspect]
     Active Substance: MIDAZOLAM
     Route: 065
     Dates: start: 20250106
  20. ACUPAN [Suspect]
     Active Substance: NEFOPAM HYDROCHLORIDE
     Indication: Pain
     Dosage: 100 MILLIGRAM, ONCE A DAY
     Route: 065
     Dates: start: 20241231, end: 20250101
  21. AMIODARONE [Concomitant]
     Active Substance: AMIODARONE
     Indication: Product used for unknown indication
     Dosage: 1 DOSAGE FORM, ONCE A DAY (1-0-0)
     Route: 065
  22. ALBUTEROL [Concomitant]
     Active Substance: ALBUTEROL
     Indication: Product used for unknown indication
     Route: 065
  23. REPAGLINIDE [Concomitant]
     Active Substance: REPAGLINIDE
     Indication: Product used for unknown indication
     Dosage: 1 DOSAGE FORM, ONCE A DAY (1 DF, QD (0.5; 1-0-0))
     Route: 065
  24. INNOVAIR [Concomitant]
     Active Substance: BECLOMETHASONE DIPROPIONATE\FORMOTEROL
     Indication: Product used for unknown indication
     Route: 065
  25. BISOPROLOL [Concomitant]
     Active Substance: BISOPROLOL
     Indication: Product used for unknown indication
     Dosage: 1 DOSAGE FORM, ONCE A DAY (2.5; 1-0-0)
     Route: 065
  26. BENSERAZIDE HYDROCHLORIDE\LEVODOPA [Concomitant]
     Active Substance: BENSERAZIDE HYDROCHLORIDE\LEVODOPA
     Indication: Product used for unknown indication
     Route: 065
  27. JANUMET [Concomitant]
     Active Substance: METFORMIN HYDROCHLORIDE\SITAGLIPTIN PHOSPHATE
     Indication: Product used for unknown indication
     Route: 065
  28. SPIRIVA [Concomitant]
     Active Substance: TIOTROPIUM BROMIDE MONOHYDRATE
     Indication: Product used for unknown indication
     Route: 065
  29. APIXABAN [Concomitant]
     Active Substance: APIXABAN
     Indication: Product used for unknown indication
     Route: 065

REACTIONS (10)
  - Anti factor V antibody [Not Recovered/Not Resolved]
  - Shock haemorrhagic [Recovering/Resolving]
  - Intra-abdominal haemorrhage [Unknown]
  - Hypoxia [Unknown]
  - Hepatic failure [Unknown]
  - Cell death [Unknown]
  - Benign recurrent intrahepatic cholestasis [Unknown]
  - Hypoglycaemia [Unknown]
  - Coagulopathy [Unknown]
  - Device related infection [Unknown]

NARRATIVE: CASE EVENT DATE: 20250107
